FAERS Safety Report 6377706-0 (Version None)
Quarter: 2009Q3

REPORT INFORMATION
  Report Type: 
  Country: None (occurrence: None)
  Receive Date: 20090925
  Receipt Date: 20090917
  Transmission Date: 20100115
  Serious: Yes (Hospitalization, Other)
  Sender: FDA-Public Use
  Company Number: US-AVENTIS-200917771US

PATIENT
  Sex: Female
  Weight: 117.27 kg

DRUGS (25)
  1. LANTUS [Suspect]
     Route: 058
  2. OPTICLIK GREY [Suspect]
     Dates: start: 20080101
  3. NOVOLOG MIX 70/30 [Suspect]
     Dosage: DOSE: 8 UNITS WITH EACH MEAL AS DIRECTED
  4. ORAL ANTIDIABETICS [Concomitant]
     Dosage: DOSE: UNK
  5. ASPIRIN [Concomitant]
  6. LASIX [Concomitant]
  7. ZETIA [Concomitant]
  8. DESYREL [Concomitant]
  9. LOPRESSOR [Concomitant]
     Indication: HYPERTENSION
  10. PROTONIX [Concomitant]
  11. OXYCODONE HCL [Concomitant]
     Dosage: DOSE: 1/2 TO 1 EVERY 4 HOURS
  12. REGLAN [Concomitant]
     Dosage: FREQUENCY: BEFORE MEALS
  13. REGLAN [Concomitant]
  14. RESTORIL                           /00393701/ [Concomitant]
  15. PHENERGAN [Concomitant]
  16. NYSTATIN [Concomitant]
     Dosage: DOSE: ^100000^
  17. MUPIROCIN [Concomitant]
     Dosage: DOSE: UNK
  18. ATARAX [Concomitant]
  19. ALTABAX [Concomitant]
     Indication: ANTIBIOTIC THERAPY
     Dosage: DOSE: APPLY TO AFFECTED AREA  AS NEEDED
  20. ANUCORT-HC [Concomitant]
     Route: 054
  21. KETOCONAZOLE [Concomitant]
     Dosage: DOSE: 2 %
  22. FLUOCINONIDE [Concomitant]
     Dosage: DOSE: APPLY TO FOLDED AND CREASED AREAS BELLY + LEG
  23. NASACORT AQ [Concomitant]
     Dosage: DOSE: 2 SPRAYS EACH NOSTRIL
     Route: 045
  24. TETANUS VACCINE [Concomitant]
     Dosage: DOSE: UNK
     Dates: start: 20081001
  25. PNEUMONIA VACCINE [Concomitant]
     Dosage: DOSE: UNK
     Dates: start: 20081001

REACTIONS (8)
  - BLOOD CHOLESTEROL INCREASED [None]
  - CARDIAC FAILURE CONGESTIVE [None]
  - HYPERTENSION [None]
  - MYOCARDIAL INFARCTION [None]
  - RENAL FAILURE [None]
  - RESPIRATORY ARREST [None]
  - RETINOPATHY HAEMORRHAGIC [None]
  - VISUAL IMPAIRMENT [None]
